FAERS Safety Report 7078283-1 (Version None)
Quarter: 2010Q4

REPORT INFORMATION
  Report Type: 
  Country: None (occurrence: None)
  Receive Date: 20101101
  Receipt Date: 20101101
  Transmission Date: 20110411
  Serious: No
  Sender: FDA-Public Use
  Company Number: None

PATIENT
  Age: 30 Year
  Sex: Female
  Weight: 88.905 kg

DRUGS (2)
  1. PAXIL [Suspect]
     Indication: DEPRESSION
     Dosage: 20 MG 2 TIMES ; 40 MG 2 TIMES
     Dates: start: 19850128, end: 20090218
  2. PAXIL [Suspect]
     Indication: OBSESSIVE-COMPULSIVE DISORDER
     Dosage: 20 MG 2 TIMES ; 40 MG 2 TIMES
     Dates: start: 19850128, end: 20090218

REACTIONS (1)
  - GALLBLADDER DISORDER [None]
